FAERS Safety Report 12283765 (Version 1)
Quarter: 2016Q2

REPORT INFORMATION
  Report Type: Spontaneous
  Country: US (occurrence: US)
  Receive Date: 20160419
  Receipt Date: 20160419
  Transmission Date: 20160815
  Serious: No
  Sender: FDA-Public Use
  Company Number: US-BANPHARM-20154055

PATIENT
  Age: 95 Year
  Weight: 72.57 kg

DRUGS (4)
  1. GLAUCOMA EYE DROPS [Concomitant]
  2. GENERIC 81MG ASPIRIN [Concomitant]
  3. ALEVE [Suspect]
     Active Substance: NAPROXEN SODIUM
     Indication: PAIN
     Dosage: 1 DF, ONCE,
     Route: 048
     Dates: start: 20150705, end: 20150705
  4. GLAUCOMA EYE DROPS [Concomitant]

REACTIONS (1)
  - Diarrhoea [Recovered/Resolved]

NARRATIVE: CASE EVENT DATE: 20150706
